FAERS Safety Report 7554341-X (Version None)
Quarter: 2011Q2

REPORT INFORMATION
  Report Type: 
  Country: None (occurrence: None)
  Receive Date: 20110617
  Receipt Date: 20110607
  Transmission Date: 20111010
  Serious: Yes (Hospitalization)
  Sender: FDA-Public Use
  Company Number: FR-SANOFI-AVENTIS-2011SA036982

PATIENT
  Age: 56 Year
  Sex: Male

DRUGS (11)
  1. DOCETAXEL [Suspect]
     Route: 042
     Dates: start: 20110401, end: 20110401
  2. ACETAMINOPHEN [Concomitant]
     Route: 048
  3. PRIMPERAN TAB [Concomitant]
     Route: 065
  4. DOCETAXEL [Suspect]
     Indication: BRONCHIAL CARCINOMA
     Route: 042
     Dates: start: 20110311, end: 20110311
  5. OXYCODONE HCL [Concomitant]
     Route: 048
  6. TRANSIPEG /FRA/ [Concomitant]
     Route: 048
  7. LANTUS [Concomitant]
     Dosage: 100 UNITS/ML
     Route: 058
  8. ALPRAZOLAM [Concomitant]
     Route: 065
  9. PREDNISONE [Concomitant]
     Indication: BRONCHIAL CARCINOMA
     Route: 048
  10. KARDEGIC [Concomitant]
     Route: 048
  11. OXYCONTIN [Concomitant]
     Route: 048

REACTIONS (3)
  - RASH GENERALISED [None]
  - HYPOTENSION [None]
  - OXYGEN SATURATION DECREASED [None]
